FAERS Safety Report 19813955 (Version 4)
Quarter: 2021Q4

REPORT INFORMATION
  Report Type: Report from Study
  Country: KR (occurrence: KR)
  Receive Date: 20210910
  Receipt Date: 20211021
  Transmission Date: 20220304
  Serious: Yes (Death, Hospitalization)
  Sender: FDA-Public Use
  Company Number: KR-CELLTRION INC.-2020KR035138

PATIENT

DRUGS (6)
  1. HERZUMA [Suspect]
     Active Substance: TRASTUZUMAB-PKRB
     Indication: Salivary gland cancer
     Dosage: 303.6 MG + NS 250 ML MIV (MIX INTRAVENOUS) DURING 30 MIN, EVERY 3 WEEKS
     Route: 042
     Dates: start: 20200427, end: 20200824
  2. PACLITAXEL [Suspect]
     Active Substance: PACLITAXEL
     Indication: Salivary gland cancer
     Dosage: 96 MG + NS 200 ML MIV (MIX INTRAVENOUS) DURING 1 HOUR, EVERY 3 WEEKS
     Route: 042
  3. SODIUM CHLORIDE [Suspect]
     Active Substance: SODIUM CHLORIDE
     Indication: Salivary gland cancer
     Dosage: HERZUMA 303.6 MG + NS 250 ML MIV DURING 30 MIN, EVERY 3 WEEKS
     Route: 042
  4. SODIUM CHLORIDE [Suspect]
     Active Substance: SODIUM CHLORIDE
     Dosage: NANOXEL 96 MG + NS 200 ML MIV DURING 1 HOUR, EVERY 3 WEEKS
     Route: 042
  5. NYSTATIN [Concomitant]
     Active Substance: NYSTATIN
     Dosage: 5 ML, QID
     Route: 048
  6. FEXOFENADINE [Concomitant]
     Active Substance: FEXOFENADINE HYDROCHLORIDE
     Dosage: 180 MG, QD
     Route: 048

REACTIONS (8)
  - Pneumonia [Fatal]
  - Condition aggravated [Fatal]
  - Stomatitis [Unknown]
  - Pruritus [Unknown]
  - Dyspnoea [Unknown]
  - Chest pain [Unknown]
  - Mucosal inflammation [Unknown]
  - Off label use [Unknown]

NARRATIVE: CASE EVENT DATE: 20200629
